FAERS Safety Report 19964868 (Version 3)
Quarter: 2021Q4

REPORT INFORMATION
  Report Type: Spontaneous
  Country: JP (occurrence: JP)
  Receive Date: 20211018
  Receipt Date: 20211214
  Transmission Date: 20220303
  Serious: Yes (Other)
  Sender: FDA-Public Use
  Company Number: JP-DSJP-DSJ-2021-134159

PATIENT
  Age: 83 Year
  Sex: Female
  Weight: 53 kg

DRUGS (31)
  1. PRASUGREL HYDROCHLORIDE [Suspect]
     Active Substance: PRASUGREL HYDROCHLORIDE
     Indication: Acute coronary syndrome
     Dosage: 20 MG, QD
     Route: 048
     Dates: start: 20211012
  2. ASPIRIN [Suspect]
     Active Substance: ASPIRIN
     Indication: Acute coronary syndrome
     Dosage: 100 MG
     Route: 048
     Dates: start: 20211012
  3. ROCURONIUM BROMIDE [Concomitant]
     Active Substance: ROCURONIUM BROMIDE
     Dosage: 7V/DAY
     Route: 065
  4. CALCIUM CHLORIDE [Concomitant]
     Active Substance: CALCIUM CHLORIDE
     Dosage: 2A/DAY
     Route: 065
  5. EPHEDRINE HYDROCHLORIDE [Concomitant]
     Active Substance: EPHEDRINE HYDROCHLORIDE
     Dosage: 1A/DAY
     Route: 065
  6. PICILLIBACTA [Concomitant]
     Active Substance: AMPICILLIN SODIUM\SULBACTAM SODIUM
     Dosage: 2/DAY
     Route: 065
  7. CARBAZOCHROME SODIUM SULFONATE [Concomitant]
     Active Substance: CARBAZOCHROME SODIUM SULFONATE
     Dosage: 3A/DAY
     Route: 065
  8. ULTIVA [Concomitant]
     Active Substance: REMIFENTANIL HYDROCHLORIDE
     Dosage: 2B/DAY
     Route: 065
  9. FENTANYL CITRATE [Concomitant]
     Active Substance: FENTANYL CITRATE
     Dosage: 5A/DAY
     Route: 065
  10. FRESH FROZEN PLASMA [Concomitant]
     Active Substance: HUMAN PLASMA
     Dosage: 10IU/DAY
     Route: 065
  11. PLATELETS [Concomitant]
     Active Substance: HUMAN PLATELET, ALLOGENIC
     Dosage: 40IU/DAY
     Route: 065
  12. SEVOFLURANE [Concomitant]
     Active Substance: SEVOFLURANE
     Dosage: 10.7ML/DAY
     Route: 065
  13. NITROUS OXIDE [Concomitant]
     Active Substance: NITROUS OXIDE
     Dosage: 260L/DAY
     Route: 065
  14. AIR [Concomitant]
     Active Substance: AIR
     Dosage: 129L/DAY
     Route: 065
  15. OXYGEN [Concomitant]
     Active Substance: OXYGEN
     Dosage: 681L/DAY
     Route: 065
  16. SODIUM CHLORIDE [Concomitant]
     Active Substance: SODIUM CHLORIDE
     Dosage: 1B/DAY
     Route: 065
  17. NICARDIPINE HYDROCHLORIDE [Concomitant]
     Active Substance: NICARDIPINE HYDROCHLORIDE
     Dosage: 1A/DAY
     Route: 065
  18. BICARBON [CALCIUM CHLORIDE DIHYDRATE;MAGNESIUM CHLORIDE HEXAHYDRATE;PO [Concomitant]
     Dosage: 3IU/DAY
     Route: 065
  19. CALCIUM GLUCONATE\DEXTROSE\MAGNESIUM CHLORIDE\POTASSIUM CHLORIDE\SODIU [Concomitant]
     Active Substance: CALCIUM GLUCONATE\DEXTROSE\MAGNESIUM CHLORIDE\POTASSIUM CHLORIDE\SODIUM ACETATE\SODIUM CHLORIDE\TRIS
     Dosage: 1IU/DAY
     Route: 065
  20. PROPOFOL [Concomitant]
     Active Substance: PROPOFOL
     Dosage: 1A/DAY
     Route: 065
  21. SODIUM CHLORIDE [Concomitant]
     Active Substance: SODIUM CHLORIDE
     Dosage: 2A/DAY
     Route: 065
  22. LANDIOLOL HYDROCHLORIDE [Concomitant]
     Active Substance: LANDIOLOL HYDROCHLORIDE
     Dosage: 1B/DAY
     Route: 065
  23. METHYLPREDNISOLONE SODIUM SUCCINATE [Concomitant]
     Active Substance: METHYLPREDNISOLONE SODIUM SUCCINATE
     Dosage: 2B/DAY
     Route: 065
  24. SOLDEM 3A [Concomitant]
     Active Substance: CARBOHYDRATES\POTASSIUM CHLORIDE\SODIUM CHLORIDE\SODIUM LACTATE
     Dosage: 1IU/DAY
     Route: 065
  25. DEXMEDETOMIDINE HYDROCHLORIDE [Concomitant]
     Active Substance: DEXMEDETOMIDINE HYDROCHLORIDE
     Dosage: 1IU/DAY
     Route: 065
  26. TRANSAMIN [Concomitant]
     Active Substance: TRANEXAMIC ACID
     Dosage: 3A/DAY
     Route: 065
  27. HAPTOGLOBIN [Concomitant]
     Dosage: 1B/DAY
     Route: 065
  28. HUMULIN R [Concomitant]
     Active Substance: INSULIN HUMAN
     Dosage: 1KT/DAY
     Route: 065
  29. PROTAMINE SULFATE [Concomitant]
     Active Substance: PROTAMINE SULFATE
     Dosage: 2V/DAY
     Route: 065
  30. HEPARIN [Concomitant]
     Active Substance: HEPARIN SODIUM
     Dosage: 3B/DAY
     Route: 065
  31. MIDAZOLAM [Concomitant]
     Active Substance: MIDAZOLAM
     Dosage: 1A/DAY
     Route: 065

REACTIONS (1)
  - Bleeding time prolonged [Recovered/Resolved]

NARRATIVE: CASE EVENT DATE: 20211013
